FAERS Safety Report 8455245-0 (Version None)
Quarter: 2012Q2

REPORT INFORMATION
  Report Type: 
  Country: None (occurrence: None)
  Receive Date: 20120621
  Receipt Date: 20120612
  Transmission Date: 20120825
  Serious: Yes (Other)
  Sender: FDA-Public Use
  Company Number: BR-SANOFI-AVENTIS-2011SA013169

PATIENT
  Age: 36 Year
  Sex: Female
  Weight: 70 kg

DRUGS (5)
  1. PREDNISONE [Concomitant]
     Dosage: STOPPED ON SECOND MONTH OF PREGNANCY
     Route: 048
     Dates: start: 20110220
  2. PROGESTERONE [Concomitant]
     Indication: PROPHYLAXIS OF ABORTION
     Dosage: STOPPED ON SECOND MONTH OF PREGNANCY
     Route: 048
     Dates: start: 20110220
  3. ENOXAPARIN SODIUM [Suspect]
     Indication: THROMBOSIS PROPHYLAXIS
     Dosage: THERAPPY STOPPED ON SECOND MONTH OF PREGNANCY
     Route: 058
     Dates: start: 20110220
  4. ASPIRIN [Concomitant]
     Indication: PLATELET AGGREGATION INHIBITION
     Dosage: STOPPED ON SECOND MONTH OF PREGNANCY
     Route: 048
     Dates: start: 20110220
  5. PROGESTERONE [Concomitant]
     Dosage: STOPPED ON SECOND MONTH OF PREGNANCY
     Route: 067
     Dates: start: 20110220

REACTIONS (3)
  - CONTUSION [None]
  - MATERNAL EXPOSURE DURING PREGNANCY [None]
  - ABORTION SPONTANEOUS [None]
